FAERS Safety Report 9675499 (Version 1)
Quarter: 2013Q4

REPORT INFORMATION
  Report Type: Spontaneous
  Country: BR (occurrence: BR)
  Receive Date: 20131107
  Receipt Date: 20131107
  Transmission Date: 20140711
  Serious: Yes (Hospitalization)
  Sender: FDA-Public Use
  Company Number: BR-SA-2013SA110655

PATIENT
  Sex: Male
  Weight: 3.6 kg

DRUGS (2)
  1. CLEXANE [Suspect]
     Indication: MATERNAL EXPOSURE TIMING UNSPECIFIED
     Route: 064
  2. ANAESTHETICS, GENERAL [Suspect]
     Indication: MATERNAL EXPOSURE TIMING UNSPECIFIED
     Route: 064
     Dates: start: 20130804, end: 20130804

REACTIONS (2)
  - Tremor [Recovered/Resolved]
  - Foetal exposure during pregnancy [Unknown]
